FAERS Safety Report 12530315 (Version 1)
Quarter: 2016Q3

REPORT INFORMATION
  Report Type: Spontaneous
  Country: US (occurrence: None)
  Receive Date: 20160705
  Receipt Date: 20160705
  Transmission Date: 20161109
  Serious: Yes (Other)
  Sender: FDA-Public Use
  Company Number: None

PATIENT
  Age: 69 Year
  Sex: Male
  Weight: 85.28 kg

DRUGS (1)
  1. JETREA [Suspect]
     Active Substance: OCRIPLASMIN
     Indication: RETINAL DETACHMENT
     Route: 031
     Dates: start: 20141013, end: 20141014

REACTIONS (2)
  - Macular hole [None]
  - Cataract operation complication [None]

NARRATIVE: CASE EVENT DATE: 20141013
